FAERS Safety Report 6078517-6 (Version None)
Quarter: 2009Q1

REPORT INFORMATION
  Report Type: 
  Country: None (occurrence: None)
  Receive Date: 20090211
  Receipt Date: 20090211
  Transmission Date: 20090719
  Serious: Yes (Hospitalization)
  Sender: FDA-Public Use
  Company Number: None

PATIENT
  Age: 56 Year
  Sex: Male
  Weight: 65.7716 kg

DRUGS (3)
  1. OXYCODONE HCL [Suspect]
     Indication: BACK PAIN
     Dosage: 5 MG AS NEEDED PO
     Route: 048
     Dates: start: 20080801, end: 20090201
  2. OXYCODONE HCL [Suspect]
     Indication: MUSCULOSKELETAL CHEST PAIN
     Dosage: 5 MG AS NEEDED PO
     Route: 048
     Dates: start: 20080801, end: 20090201
  3. OXYCODONE HCL [Suspect]
     Dosage: 10 MG AS NEEDED PO
     Route: 048

REACTIONS (4)
  - CONFUSIONAL STATE [None]
  - CONVULSION [None]
  - HALLUCINATION [None]
  - PRODUCT QUALITY ISSUE [None]
